FAERS Safety Report 21883422 (Version 1)
Quarter: 2023Q1

REPORT INFORMATION
  Report Type: Spontaneous
  Country: GB (occurrence: GB)
  Receive Date: 20230119
  Receipt Date: 20230119
  Transmission Date: 20230417
  Serious: Yes (Other)
  Sender: FDA-Public Use
  Company Number: None

PATIENT
  Age: 25 Year
  Sex: Female
  Weight: 65 kg

DRUGS (12)
  1. AMOXICILLIN [Suspect]
     Active Substance: AMOXICILLIN
     Dosage: FOR 7 DAYS
     Dates: start: 20230105
  2. ACETIC ACID [Concomitant]
     Active Substance: ACETIC ACID
     Dates: start: 20230105
  3. POLYETHYLENE GLYCOL 3350\POTASSIUM CHLORIDE\SODIUM BICARBONATE\SODIUM [Concomitant]
     Active Substance: POLYETHYLENE GLYCOL 3350\POTASSIUM CHLORIDE\SODIUM BICARBONATE\SODIUM CHLORIDE
     Dates: start: 20221214
  4. UNSPECIFIED INGREDIENT [Concomitant]
     Active Substance: UNSPECIFIED INGREDIENT
     Dosage: INHALE ONE TO TWO DOSES (PLEASE RETUR...
     Dates: start: 20221019
  5. ERYTHROMYCIN [Concomitant]
     Active Substance: ERYTHROMYCIN
     Dates: start: 20230106
  6. FERROUS SULFATE [Concomitant]
     Active Substance: FERROUS SULFATE
     Dates: start: 20220727
  7. FLUCLOXACILLIN [Concomitant]
     Active Substance: FLUCLOXACILLIN
     Dates: start: 20230102
  8. MICRALAX [Concomitant]
     Route: 054
     Dates: start: 20221214, end: 20221220
  9. NICORETTE [Concomitant]
     Active Substance: NICOTINE
     Indication: Smoking cessation therapy
     Dosage: CHEW WHEN GETTING THE URGE TO SMOKE
     Route: 048
     Dates: start: 20221215
  10. NICOTINE [Concomitant]
     Active Substance: NICOTINE
     Dates: start: 20221221
  11. NIQUITIN [Concomitant]
     Active Substance: NICOTINE
     Indication: Smoking cessation therapy
     Dosage: APPLY TO HELP STOP SMOKING
     Dates: start: 20221215, end: 20221229
  12. OTOMIZE [Concomitant]
     Dosage: IN EACH EAR
     Dates: start: 20230105, end: 20230105

REACTIONS (1)
  - Throat tightness [Recovered/Resolved]

NARRATIVE: CASE EVENT DATE: 20230106
